FAERS Safety Report 21910609 (Version 3)
Quarter: 2023Q1

REPORT INFORMATION
  Report Type: Spontaneous
  Country: US (occurrence: US)
  Receive Date: 20230125
  Receipt Date: 20230228
  Transmission Date: 20230418
  Serious: No
  Sender: FDA-Public Use
  Company Number: US-SA-SAC20230123000365

PATIENT
  Age: 74 Year
  Sex: Female

DRUGS (1)
  1. DUPIXENT [Suspect]
     Active Substance: DUPILUMAB
     Indication: Dermatitis atopic
     Dosage: 300 MG, QOW
     Route: 058
     Dates: start: 20220922

REACTIONS (5)
  - Dermatitis contact [Recovered/Resolved]
  - Seborrhoeic dermatitis [Recovered/Resolved]
  - Pruritus [Recovered/Resolved]
  - Skin exfoliation [Unknown]
  - Rash [Recovered/Resolved]
